FAERS Safety Report 10332603 (Version 1)
Quarter: 2014Q3

REPORT INFORMATION
  Report Type: Spontaneous
  Country: AR (occurrence: AR)
  Receive Date: 20140722
  Receipt Date: 20140722
  Transmission Date: 20150326
  Serious: Yes (Other)
  Sender: FDA-Public Use
  Company Number: AR-MYLANLABS-2014S1016757

PATIENT
  Age: 57 Year
  Sex: Male

DRUGS (2)
  1. DRONEDARONE [Suspect]
     Active Substance: DRONEDARONE
     Route: 065
  2. METOPROLOL [Interacting]
     Active Substance: METOPROLOL
     Route: 065

REACTIONS (8)
  - Dyspnoea [Unknown]
  - Hot flush [Unknown]
  - Electrocardiogram QT prolonged [Unknown]
  - Lethargy [Unknown]
  - Bradycardia [Unknown]
  - Supraventricular extrasystoles [Unknown]
  - Atrial fibrillation [Unknown]
  - Atrioventricular block first degree [Unknown]
